FAERS Safety Report 22311992 (Version 1)
Quarter: 2023Q2

REPORT INFORMATION
  Report Type: Spontaneous
  Country: US (occurrence: US)
  Receive Date: 20230512
  Receipt Date: 20230512
  Transmission Date: 20230722
  Serious: No
  Sender: FDA-Public Use
  Company Number: US-SANOFI-01605592

PATIENT
  Age: 32 Year
  Sex: Male

DRUGS (1)
  1. DUPIXENT [Suspect]
     Active Substance: DUPILUMAB
     Indication: Eosinophilic oesophagitis
     Dosage: 300 MG, QW
     Dates: start: 20230130, end: 20230421

REACTIONS (5)
  - Cheilitis [Unknown]
  - Gingival bleeding [Unknown]
  - Tongue coated [Unknown]
  - Coating in mouth [Unknown]
  - Malaise [Unknown]

NARRATIVE: CASE EVENT DATE: 20230101
